FAERS Safety Report 16631396 (Version 1)
Quarter: 2019Q3

REPORT INFORMATION
  Report Type: Spontaneous
  Country: PL (occurrence: PL)
  Receive Date: 20190725
  Receipt Date: 20190725
  Transmission Date: 20191004
  Serious: Yes (Other)
  Sender: FDA-Public Use
  Company Number: PL-PFIZER INC-2019310085

PATIENT
  Age: 67 Year
  Sex: Female
  Weight: 80 kg

DRUGS (17)
  1. SUTENT [Suspect]
     Active Substance: SUNITINIB MALATE
     Indication: RENAL CANCER
     Dosage: 50 MG, 1X/DAY
     Route: 048
     Dates: start: 20141219, end: 20150227
  2. POLPRAZOL [Concomitant]
     Active Substance: OMEPRAZOLE
     Dosage: UNK, 1X/DAY
  3. SUTENT [Suspect]
     Active Substance: SUNITINIB MALATE
     Dosage: 37.5 MG, 1X/DAY
     Route: 048
     Dates: start: 20150320, end: 20150528
  4. TRANSTEC [Concomitant]
     Active Substance: BUPRENORPHINE
     Dosage: UNK
  5. KETONAL [Concomitant]
     Active Substance: KETOPROFEN
     Dosage: 50 MG, 1 TABLET AS NECESSARY
  6. HEPA-MERZ [Concomitant]
     Dosage: 3X/DAY SACHET
  7. SYLIMAROL [Concomitant]
     Dosage: UNK, 1X/DAY
  8. AMLOZEK [Concomitant]
     Active Substance: AMLODIPINE BESYLATE
     Dosage: 10 MG, 1X/DAY
  9. ZALDIAR [Concomitant]
     Active Substance: ACETAMINOPHEN\TRAMADOL HYDROCHLORIDE
     Dosage: 1 TABLET AS NEEDED
  10. CYCLONAMINE [Concomitant]
     Active Substance: ETHAMSYLATE
     Dosage: 3X/DAY 1 TABLET
  11. SORTIS [Concomitant]
     Active Substance: ATORVASTATIN
     Dosage: 10 MG, 1X/DAY
  12. NO-SPA [Concomitant]
     Active Substance: DROTAVERINE HYDROCHLORIDE
     Dosage: 2X/DAY 1 TABLET
  13. PIRAMIL [Concomitant]
     Active Substance: RAMIPRIL
     Dosage: UNK, 1X/DAY
  14. MEGALIA [Concomitant]
     Active Substance: MEGESTROL ACETATE
     Dosage: 1X20ML
  15. TORASEMID [Concomitant]
     Active Substance: TORSEMIDE
     Dosage: 10 MG, 1X/DAY
  16. ATOSSA [Concomitant]
     Dosage: 1 TABLET AS NEEDED
  17. ESSELIV [Concomitant]
     Dosage: 2X1 TABLET

REACTIONS (17)
  - Dyspepsia [Recovered/Resolved]
  - Nausea [Recovered/Resolved]
  - Decreased appetite [Recovered/Resolved]
  - Neutropenia [Recovered/Resolved]
  - Lymphopenia [Recovered/Resolved]
  - Dizziness [Recovered/Resolved]
  - Renal failure [Recovered/Resolved]
  - Thrombocytopenia [Recovered/Resolved]
  - Leukopenia [Recovered/Resolved]
  - Hyperglycaemia [Recovered/Resolved]
  - Diarrhoea [Recovered/Resolved]
  - Hypertension [Recovered/Resolved]
  - Myalgia [Recovered/Resolved]
  - Vomiting [Recovered/Resolved]
  - Epistaxis [Recovered/Resolved]
  - Headache [Recovered/Resolved]
  - Liver disorder [Recovered/Resolved]

NARRATIVE: CASE EVENT DATE: 20141219
